FAERS Safety Report 6209393-6 (Version None)
Quarter: 2009Q2

REPORT INFORMATION
  Report Type: 
  Country: None (occurrence: None)
  Receive Date: 20090529
  Receipt Date: 20090518
  Transmission Date: 20091009
  Serious: Yes (Other)
  Sender: FDA-Public Use
  Company Number: US-GENENTECH-283627

PATIENT

DRUGS (2)
  1. RITUXAN [Suspect]
     Indication: WALDENSTROM'S MACROGLOBULINAEMIA
     Dosage: 375 MG/M2, 1/WEEK
     Route: 042
  2. FLUDARABINE PHOSPHATE [Suspect]
     Indication: WALDENSTROM'S MACROGLOBULINAEMIA
     Dosage: 25 MG/M2, UNK
     Route: 065

REACTIONS (15)
  - ACUTE MYELOID LEUKAEMIA [None]
  - BLADDER CANCER [None]
  - CEREBRAL HAEMORRHAGE [None]
  - DISEASE PROGRESSION [None]
  - ENCEPHALITIS [None]
  - HAEMOLYTIC ANAEMIA [None]
  - HYPERVISCOSITY SYNDROME [None]
  - INTERSTITIAL LUNG DISEASE [None]
  - LYMPHOMA [None]
  - METASTATIC NEOPLASM [None]
  - MYELODYSPLASTIC SYNDROME [None]
  - NEUROPATHY PERIPHERAL [None]
  - NEUTROPENIA [None]
  - PNEUMONIA [None]
  - THROMBOCYTOPENIA [None]
